FAERS Safety Report 19382733 (Version 1)
Quarter: 2021Q2

REPORT INFORMATION
  Report Type: Spontaneous
  Country: CH (occurrence: CH)
  Receive Date: 20210607
  Receipt Date: 20210607
  Transmission Date: 20210717
  Serious: Yes (Hospitalization)
  Sender: FDA-Public Use
  Company Number: CH-EXELIXIS-CABO-21040987

PATIENT
  Sex: Male

DRUGS (2)
  1. CABOMETYX [Suspect]
     Active Substance: CABOZANTINIB S-MALATE
     Dosage: 40 MG
     Dates: start: 20210111
  2. CABOMETYX [Suspect]
     Active Substance: CABOZANTINIB S-MALATE
     Indication: METASTATIC RENAL CELL CARCINOMA
     Dosage: 60 MG, QD
     Dates: start: 20201109, end: 20201212

REACTIONS (6)
  - General physical health deterioration [Recovered/Resolved]
  - Clostridium difficile colitis [Unknown]
  - Decreased appetite [Recovered/Resolved]
  - Pneumonia staphylococcal [Recovered/Resolved]
  - Fatigue [Recovered/Resolved]
  - Off label use [Unknown]
